FAERS Safety Report 5857163-0 (Version None)
Quarter: 2008Q3

REPORT INFORMATION
  Report Type: 
  Country: None (occurrence: None)
  Receive Date: 20080825
  Receipt Date: 20080818
  Transmission Date: 20090109
  Serious: Yes (Hospitalization)
  Sender: FDA-Public Use
  Company Number: PHHY2008FR18754

PATIENT
  Age: 27 Year
  Sex: Male

DRUGS (2)
  1. MYFORTIC [Suspect]
     Indication: RENAL TRANSPLANT
     Dosage: 2 TABLET/DAY
     Route: 048
     Dates: start: 20070401
  2. PROGRAF [Suspect]
     Indication: RENAL TRANSPLANT
     Dosage: 2 CAPSULE/DAY
     Route: 048
     Dates: start: 20070401

REACTIONS (10)
  - ABNORMAL BEHAVIOUR [None]
  - AMNESIA [None]
  - APPETITE DISORDER [None]
  - ASTHENIA [None]
  - DISORIENTATION [None]
  - ENCEPHALITIS TOXIC [None]
  - MEMORY IMPAIRMENT [None]
  - MENTAL IMPAIRMENT [None]
  - SLEEP DISORDER [None]
  - SLUGGISHNESS [None]
